FAERS Safety Report 8819724 (Version 1)
Quarter: 2012Q4

REPORT INFORMATION
  Report Type: 
  Country: US (occurrence: US)
  Receive Date: 20121001
  Receipt Date: 20121001
  Transmission Date: 20130627
  Serious: Yes (Other)
  Sender: FDA-Public Use
  Company Number: US-ROCHE-1129875

PATIENT
  Sex: Female

DRUGS (4)
  1. HERCEPTIN [Suspect]
     Indication: BREAST CANCER
     Dosage: loading dose
     Route: 065
     Dates: start: 19981217
  2. HERCEPTIN [Suspect]
     Dosage: maintenance dose
     Route: 065
  3. PAMIDRONATE DISODIUM [Concomitant]
  4. COUMADIN [Concomitant]

REACTIONS (3)
  - Pleural effusion [Unknown]
  - Cardiac tamponade [Unknown]
  - Disease progression [Unknown]
